FAERS Safety Report 20255723 (Version 1)
Quarter: 2021Q4

REPORT INFORMATION
  Report Type: Spontaneous
  Country: FR (occurrence: FR)
  Receive Date: 20211230
  Receipt Date: 20211230
  Transmission Date: 20220303
  Serious: Yes (Other)
  Sender: FDA-Public Use
  Company Number: FR-AMGEN-FRASP2021203665

PATIENT
  Age: 35 Year
  Sex: Female

DRUGS (7)
  1. ROMIPLOSTIM [Suspect]
     Active Substance: ROMIPLOSTIM
     Indication: Immune thrombocytopenia
     Dosage: UNK
     Route: 065
  2. HUMAN IMMUNOGLOBULIN G [Concomitant]
     Active Substance: HUMAN IMMUNOGLOBULIN G
  3. ELTROMBOPAG [Concomitant]
     Active Substance: ELTROMBOPAG
  4. MYCOPHENOLATE MOFETIL [Concomitant]
     Active Substance: MYCOPHENOLATE MOFETIL
  5. AZATHIOPRINE [Concomitant]
     Active Substance: AZATHIOPRINE
  6. CYCLOSPORINE [Concomitant]
     Active Substance: CYCLOSPORINE
  7. CYCLOPHOSPHAMIDE [Concomitant]
     Active Substance: CYCLOPHOSPHAMIDE

REACTIONS (2)
  - Immune thrombocytopenia [Unknown]
  - Treatment failure [Unknown]
